FAERS Safety Report 9800877 (Version 2)
Quarter: 2014Q1

REPORT INFORMATION
  Report Type: Spontaneous
  Country: US (occurrence: US)
  Receive Date: 20140107
  Receipt Date: 20140311
  Transmission Date: 20141002
  Serious: No
  Sender: FDA-Public Use
  Company Number: US-PFIZER INC-2014002771

PATIENT
  Age: 73 Year
  Sex: Male

DRUGS (10)
  1. INLYTA [Suspect]
     Indication: RENAL CANCER
     Dosage: 5 MG, UNK
     Dates: start: 20131218
  2. ACETAMINOPHEN [Concomitant]
     Dosage: UNK
  3. REGLAN [Concomitant]
     Dosage: UNK
  4. DEXAMETHASONE [Concomitant]
     Dosage: UNK
  5. ROXICET [Concomitant]
     Dosage: UNK
  6. DOCUSATE CALCIUM [Concomitant]
     Dosage: UNK
  7. ZANTAC [Concomitant]
     Dosage: UNK
  8. HYDROCODONE W/ACETAMINOPHEN [Concomitant]
     Dosage: UNK
  9. MARINOL [Concomitant]
     Dosage: UNK
  10. PSYLLIUM [Concomitant]
     Dosage: UNK

REACTIONS (2)
  - Oral pain [Unknown]
  - Back pain [Unknown]
